FAERS Safety Report 8069654-5 (Version None)
Quarter: 2012Q1

REPORT INFORMATION
  Report Type: 
  Country: None (occurrence: None)
  Receive Date: 20120125
  Receipt Date: 20120118
  Transmission Date: 20120608
  Serious: Yes (Other)
  Sender: FDA-Public Use
  Company Number: JP-SANOFI-AVENTIS-2011SA084723

PATIENT
  Age: 80 Year
  Sex: Male

DRUGS (7)
  1. MERISLON [Concomitant]
  2. FERROUS CITRATE [Concomitant]
  3. ZOLPIDEM [Concomitant]
  4. ALL OTHER THERAPEUTIC PRODUCTS [Concomitant]
  5. ASPIRIN [Concomitant]
  6. CALBLOCK [Concomitant]
  7. PLAVIX [Suspect]
     Indication: TRANSIENT ISCHAEMIC ATTACK
     Route: 065

REACTIONS (1)
  - LOSS OF CONSCIOUSNESS [None]
